FAERS Safety Report 12121718 (Version 1)
Quarter: 2016Q1

REPORT INFORMATION
  Report Type: Spontaneous
  Country: US (occurrence: US)
  Receive Date: 20160226
  Receipt Date: 20160226
  Transmission Date: 20160526
  Serious: No
  Sender: FDA-Public Use
  Company Number: US-ALLERGAN-1208517US

PATIENT
  Age: 33 Year
  Sex: Female
  Weight: 127 kg

DRUGS (1)
  1. REFRESH OPTIVE [Suspect]
     Active Substance: CARBOXYMETHYLCELLULOSE SODIUM\GLYCERIN
     Indication: DRY EYE
     Dosage: 1 TO 2 GTT OU, Q2HR
     Route: 047
     Dates: start: 20120615, end: 201207

REACTIONS (3)
  - Headache [Recovered/Resolved]
  - Dry eye [Not Recovered/Not Resolved]
  - Eye irritation [Recovered/Resolved]

NARRATIVE: CASE EVENT DATE: 201206
